FAERS Safety Report 19155334 (Version 2)
Quarter: 2021Q2

REPORT INFORMATION
  Report Type: Spontaneous
  Country: ZA (occurrence: ZA)
  Receive Date: 20210419
  Receipt Date: 20210507
  Transmission Date: 20210717
  Serious: Yes (Other)
  Sender: FDA-Public Use
  Company Number: ZA-BAYER-2021-121210

PATIENT
  Age: 17 Year
  Sex: Female

DRUGS (1)
  1. ELOINE [Suspect]
     Active Substance: DROSPIRENONE\ETHINYL ESTRADIOL
     Indication: ACNE
     Dosage: UNK
     Route: 048
     Dates: start: 20210408, end: 20210409

REACTIONS (2)
  - Acute generalised exanthematous pustulosis [Recovered/Resolved]
  - Oropharyngeal pain [None]

NARRATIVE: CASE EVENT DATE: 20210410
